FAERS Safety Report 5254597-2 (Version None)
Quarter: 2007Q1

REPORT INFORMATION
  Report Type: 
  Country: None (occurrence: None)
  Receive Date: 20070302
  Receipt Date: 20070220
  Transmission Date: 20070707
  Serious: Yes (Life-Threatening, Other)
  Sender: FDA-Public Use
  Company Number: US-PFIZER INC-2007013992

PATIENT
  Sex: Female
  Weight: 118.8 kg

DRUGS (7)
  1. NEURONTIN [Suspect]
     Indication: DIABETIC NEUROPATHY
     Dates: start: 20020101, end: 20070105
  2. ALTACE [Concomitant]
  3. LANTUS [Concomitant]
  4. LASIX [Concomitant]
  5. KEPPRA [Concomitant]
  6. BACLOFEN [Concomitant]
  7. WELLBUTRIN SR [Concomitant]

REACTIONS (4)
  - COMA [None]
  - DIARRHOEA [None]
  - DRUG INEFFECTIVE [None]
  - PAIN [None]
